FAERS Safety Report 14160545 (Version 1)
Quarter: 2017Q4

REPORT INFORMATION
  Report Type: Spontaneous
  Country: US (occurrence: None)
  Receive Date: 20171103
  Receipt Date: 20171103
  Transmission Date: 20180321
  Serious: No
  Sender: FDA-Public Use
  Company Number: None

PATIENT
  Age: 47 Year
  Sex: Female

DRUGS (1)
  1. BOTOX [Suspect]
     Active Substance: ONABOTULINUMTOXINA
     Dosage: DOSE AMOUNT - 155 UNITS?FREQUENCY - Q 91 DAYS
     Route: 058

REACTIONS (1)
  - Xerophthalmia [None]

NARRATIVE: CASE EVENT DATE: 20170815
